FAERS Safety Report 10517950 (Version 5)
Quarter: 2014Q4

REPORT INFORMATION
  Report Type: Report from Study
  Country: CA (occurrence: CA)
  Receive Date: 20141015
  Receipt Date: 20141113
  Transmission Date: 20150528
  Serious: Yes (Death, Life-Threatening, Hospitalization, Disabling)
  Sender: FDA-Public Use
  Company Number: CA-ROCHE-1435743

PATIENT
  Age: 44 Year
  Sex: Male
  Weight: 141.8 kg

DRUGS (2)
  1. VISMODEGIB [Suspect]
     Active Substance: VISMODEGIB
     Indication: BASAL CELL CARCINOMA
     Route: 048
     Dates: start: 20140108, end: 20140429
  2. VISMODEGIB [Suspect]
     Active Substance: VISMODEGIB
     Indication: BASAL CELL CARCINOMA
     Dosage: ON 03/JUL/2014 - THE LAST DOSE WAS GIVEN PRIOR TO THE EVENT. ON 22/JUL/2014 IT WAS DECIDED TO WITHDR
     Route: 048
     Dates: start: 20140624, end: 20140703

REACTIONS (2)
  - Congenital cerebral cyst [Recovered/Resolved with Sequelae]
  - Pulmonary embolism [Fatal]

NARRATIVE: CASE EVENT DATE: 20140703
